FAERS Safety Report 24731005 (Version 4)
Quarter: 2025Q4

REPORT INFORMATION
  Report Type: Report from Study
  Country: US (occurrence: None)
  Receive Date: 20241213
  Receipt Date: 20251217
  Transmission Date: 20260118
  Serious: Yes (Other)
  Sender: UCB
  Company Number: US-UCBSA-2024064310

PATIENT
  Age: 76 Year
  Weight: 55.91 kg

DRUGS (7)
  1. ROTIGOTINE [Suspect]
     Active Substance: ROTIGOTINE
     Indication: Parkinson^s disease
     Dosage: 1 MILLIGRAM DAILY APPLY 1 PATCH TOPICALLY EVERY DAY
  2. CARBIDOPA LEVODOPA [Suspect]
     Active Substance: CARBIDOPA\LEVODOPA
     Indication: Product used for unknown indication
     Dosage: UNK
  3. MIRAPEX [Suspect]
     Active Substance: PRAMIPEXOLE DIHYDROCHLORIDE
     Indication: Product used for unknown indication
     Dosage: UNK
  4. RASAGILINE [Concomitant]
     Active Substance: RASAGILINE
     Indication: Product used for unknown indication
     Dosage: 1 MILLIGRAM, ONCE DAILY (QD)
     Route: 061
  5. FLONASE [Concomitant]
     Active Substance: FLUTICASONE PROPIONATE
     Indication: Product used for unknown indication
     Dosage: 50 MICROGRAM, ONCE DAILY (QD)
  6. MELOXICAM [Concomitant]
     Active Substance: MELOXICAM
     Indication: Product used for unknown indication
     Dosage: UNK ONCE DAILY
  7. TYLENOL [Concomitant]
     Active Substance: ACETAMINOPHEN
     Indication: Pain
     Dosage: UNK AS NEEDED

REACTIONS (20)
  - Parkinson^s disease [Unknown]
  - Dizziness [Unknown]
  - Rash [Unknown]
  - Urticaria [Unknown]
  - Flushing [Unknown]
  - Headache [Unknown]
  - Weight decreased [Unknown]
  - Fall [Unknown]
  - Constipation [Unknown]
  - Micturition urgency [Unknown]
  - Nocturia [Unknown]
  - Abnormal dreams [Unknown]
  - Fatigue [Unknown]
  - Anxiety [Unknown]
  - Anosmia [Unknown]
  - Application site reaction [Unknown]
  - Balance disorder [Not Recovered/Not Resolved]
  - Gait disturbance [Unknown]
  - Confusional state [Unknown]
  - Tremor [Unknown]
